FAERS Safety Report 17626682 (Version 1)
Quarter: 2020Q2

REPORT INFORMATION
  Report Type: Spontaneous
  Country: US (occurrence: US)
  Receive Date: 20200405
  Receipt Date: 20200405
  Transmission Date: 20200713
  Serious: No
  Sender: FDA-Public Use
  Company Number: US-CEDIPROF, INC.-2082323

PATIENT
  Sex: Female

DRUGS (2)
  1. SYNTHROID [Suspect]
     Active Substance: LEVOTHYROXINE SODIUM
  2. LEVO-T [Suspect]
     Active Substance: LEVOTHYROXINE SODIUM
     Indication: PRODUCT USED FOR UNKNOWN INDICATION

REACTIONS (9)
  - Irritability [Unknown]
  - Insomnia [Unknown]
  - Nervousness [Unknown]
  - Dyspnoea [Unknown]
  - Heart rate irregular [None]
  - Unevaluable event [Unknown]
  - Panic attack [Unknown]
  - Urinary tract infection [Unknown]
  - Appetite disorder [Unknown]
